FAERS Safety Report 18611325 (Version 1)
Quarter: 2020Q4

REPORT INFORMATION
  Report Type: Spontaneous
  Country: US (occurrence: US)
  Receive Date: 20201214
  Receipt Date: 20201214
  Transmission Date: 20210114
  Serious: Yes (Hospitalization)
  Sender: FDA-Public Use
  Company Number: None

PATIENT
  Age: 11 Week
  Sex: Male

DRUGS (1)
  1. NORDITROPIN [Suspect]
     Active Substance: SOMATROPIN
     Indication: HYPOPITUITARISM
     Dosage: ?          OTHER FREQUENCY:6 TIMES PER WEEK;?
     Route: 058
     Dates: start: 20201116

REACTIONS (2)
  - Illness [None]
  - Pyrexia [None]

NARRATIVE: CASE EVENT DATE: 20201209
